FAERS Safety Report 17338583 (Version 1)
Quarter: 2020Q1

REPORT INFORMATION
  Report Type: Spontaneous
  Country: IN (occurrence: IN)
  Receive Date: 20200129
  Receipt Date: 20200129
  Transmission Date: 20200409
  Serious: Yes (Hospitalization)
  Sender: FDA-Public Use
  Company Number: IN-MYLANLABS-2020M1009919

PATIENT
  Age: 5 Decade
  Sex: Male

DRUGS (2)
  1. METHOTREXATE. [Suspect]
     Active Substance: METHOTREXATE
     Indication: PSORIASIS
     Dosage: PRESCRIBED DOSE WAS 15MG WEEKLY
     Route: 048
  2. FOLIC ACID. [Concomitant]
     Active Substance: FOLIC ACID
     Indication: PRODUCT USED FOR UNKNOWN INDICATION
     Dosage: 5 MILLIGRAM, QW
     Route: 065

REACTIONS (9)
  - Accidental overdose [Recovering/Resolving]
  - Haematuria [Unknown]
  - Skin erosion [Recovering/Resolving]
  - Genital erosion [Recovering/Resolving]
  - Inappropriate schedule of product administration [Recovering/Resolving]
  - Toxicity to various agents [Recovering/Resolving]
  - Pancytopenia [Recovering/Resolving]
  - Oral mucosa erosion [Recovering/Resolving]
  - Skin haemorrhage [Recovering/Resolving]
